FAERS Safety Report 8449771-8 (Version None)
Quarter: 2012Q2

REPORT INFORMATION
  Report Type: 
  Country: None (occurrence: None)
  Receive Date: 20120614
  Receipt Date: 20120614
  Transmission Date: 20120825
  Serious: No
  Sender: FDA-Public Use
  Company Number: None

PATIENT
  Age: 53 Year
  Sex: Male
  Weight: 86.637 kg

DRUGS (3)
  1. INCIVEK [Concomitant]
  2. RIBASPHERE [Concomitant]
  3. PEGASYS [Suspect]
     Indication: HEPATITIS C
     Dosage: 180 MCG SUBCUTANEOUSLY ONCE
     Route: 058
     Dates: start: 20110801, end: 20120605

REACTIONS (1)
  - HYPOACUSIS [None]
